FAERS Safety Report 9551474 (Version 1)
Quarter: 2013Q3

REPORT INFORMATION
  Report Type: Report from Study
  Country: US (occurrence: US)
  Receive Date: 20130925
  Receipt Date: 20130925
  Transmission Date: 20140515
  Serious: Yes (Hospitalization, Other)
  Sender: FDA-Public Use
  Company Number: US-ALEXION PHARMACEUTICALS INC.-A201302300

PATIENT
  Age: 69 Year
  Sex: Female

DRUGS (1)
  1. SOLIRIS [Suspect]
     Indication: PAROXYSMAL NOCTURNAL HAEMOGLOBINURIA
     Dosage: UNK
     Route: 042

REACTIONS (5)
  - Bacterial infection [Recovering/Resolving]
  - Transfusion [Unknown]
  - Pyrexia [Recovering/Resolving]
  - Fatigue [Recovering/Resolving]
  - Chills [Recovering/Resolving]
